FAERS Safety Report 5820691-8 (Version None)
Quarter: 2008Q3

REPORT INFORMATION
  Report Type: 
  Country: None (occurrence: None)
  Receive Date: 20080724
  Receipt Date: 20080218
  Transmission Date: 20090109
  Serious: No
  Sender: FDA-Public Use
  Company Number: A0710262A

PATIENT
  Age: 62 Year
  Sex: Female

DRUGS (7)
  1. AVANDIA [Suspect]
     Dosage: 4MG PER DAY
     Route: 048
     Dates: start: 20080123
  2. TOPROL-XL [Concomitant]
  3. CRESTOR [Concomitant]
  4. SPIRIVA [Concomitant]
  5. NASACORT AQ [Concomitant]
  6. ADVIL [Concomitant]
  7. VICODIN [Concomitant]

REACTIONS (1)
  - WEIGHT INCREASED [None]
